FAERS Safety Report 8890100 (Version 1)
Quarter: 2012Q4

REPORT INFORMATION
  Report Type: Spontaneous
  Country: US (occurrence: None)
  Receive Date: 20121105
  Receipt Date: 20121105
  Transmission Date: 20130627
  Serious: Yes (Disabling)
  Sender: FDA-Public Use
  Company Number: None

PATIENT
  Age: 72 Year
  Sex: Female
  Weight: 51.71 kg

DRUGS (1)
  1. PROLIA [Suspect]
     Indication: OSTEOPOROSIS
     Dosage: unknown once sq
     Route: 058
     Dates: start: 20120826, end: 20120826

REACTIONS (4)
  - Pain in extremity [None]
  - Groin pain [None]
  - Back pain [None]
  - No therapeutic response [None]
